FAERS Safety Report 22843828 (Version 6)
Quarter: 2023Q4

REPORT INFORMATION
  Report Type: Spontaneous
  Country: GR (occurrence: GR)
  Receive Date: 20230821
  Receipt Date: 20231103
  Transmission Date: 20240110
  Serious: No
  Sender: FDA-Public Use
  Company Number: GR-PFIZER INC-PV202300136729

PATIENT
  Age: 1 Year
  Sex: Male
  Weight: 9 kg

DRUGS (4)
  1. GENOTROPIN [Suspect]
     Active Substance: SOMATROPIN
     Indication: Hypopituitarism
     Dosage: UNK
     Route: 058
     Dates: start: 202307
  2. HYDRACORT [HYDROCORTISONE] [Concomitant]
     Dosage: SYR 20MG/5ML (1ML, 0.5ML, 0.25ML)
  3. LEVOTHYROXINE [Concomitant]
     Active Substance: LEVOTHYROXINE
     Dosage: 37 MG, 3X/WEEKLY
  4. LEVOTHYROXINE [Concomitant]
     Active Substance: LEVOTHYROXINE
     Dosage: 25 MG, 4X/WEEK

REACTIONS (3)
  - Wrong technique in device usage process [Unknown]
  - Device leakage [Unknown]
  - Intentional dose omission [Unknown]

NARRATIVE: CASE EVENT DATE: 20230101
